FAERS Safety Report 8209510-2 (Version None)
Quarter: 2012Q1

REPORT INFORMATION
  Report Type: 
  Country: None (occurrence: None)
  Receive Date: 20120314
  Receipt Date: 20120306
  Transmission Date: 20120608
  Serious: Yes (Hospitalization, Other)
  Sender: FDA-Public Use
  Company Number: GB-ELI_LILLY_AND_COMPANY-GB201203002131

PATIENT
  Sex: Male

DRUGS (1)
  1. HUMULIN N [Suspect]
     Dosage: UNK

REACTIONS (7)
  - FOOD POISONING [None]
  - OESOPHAGEAL DISORDER [None]
  - ABNORMAL BEHAVIOUR [None]
  - CORONARY ARTERY BYPASS [None]
  - CONFUSIONAL STATE [None]
  - AMNESIA [None]
  - AGGRESSION [None]
